FAERS Safety Report 4416636-8 (Version None)
Quarter: 2004Q2

REPORT INFORMATION
  Report Type: 
  Country: None (occurrence: None)
  Receive Date: 20040630
  Receipt Date: 20040315
  Transmission Date: 20050107
  Serious: Yes (Other)
  Sender: FDA-Public Use
  Company Number: ENTC2004-0051

PATIENT
  Age: 69 Year
  Sex: Male

DRUGS (4)
  1. STALEVO 100 [Suspect]
     Indication: PARKINSON'S DISEASE
     Dosage: 50 MG/12.5 MG/200 MG THREE TIMES DAILY, ORAL
     Route: 048
     Dates: start: 20031222
  2. LIPITOR [Concomitant]
  3. DIOVAN [Concomitant]
  4. ECOTRIN [Concomitant]

REACTIONS (1)
  - MYALGIA [None]
